FAERS Safety Report 6379268-0 (Version None)
Quarter: 2009Q3

REPORT INFORMATION
  Report Type: 
  Country: None (occurrence: None)
  Receive Date: 20090928
  Receipt Date: 20090914
  Transmission Date: 20100115
  Serious: Yes (Other)
  Sender: FDA-Public Use
  Company Number: US-PFIZER INC-2009273785

PATIENT
  Age: 44 Year
  Sex: Male

DRUGS (4)
  1. XANAX [Suspect]
     Dosage: UNK
     Route: 065
     Dates: end: 20070101
  2. CODEINE [Suspect]
     Dosage: UNK
     Route: 065
     Dates: end: 20070101
  3. PERCOCET [Suspect]
     Dosage: UNK
     Route: 065
     Dates: end: 20070101
  4. VICODIN [Suspect]
     Dosage: UNK
     Route: 065
     Dates: end: 20070101

REACTIONS (2)
  - DRUG ABUSE [None]
  - DRUG DIVERSION [None]
